FAERS Safety Report 9165714 (Version 1)
Quarter: 2013Q1

REPORT INFORMATION
  Report Type: Spontaneous
  Country: NO (occurrence: NO)
  Receive Date: 20130315
  Receipt Date: 20130315
  Transmission Date: 20140127
  Serious: Yes (Other)
  Sender: FDA-Public Use
  Company Number: NO-SANOFI-AVENTIS-2013SA023012

PATIENT
  Sex: Female

DRUGS (2)
  1. MULTAQ [Suspect]
     Indication: ATRIAL FIBRILLATION
     Route: 065
     Dates: start: 2010
  2. PREDNISOLONE [Concomitant]
     Indication: OSTEOPOROSIS

REACTIONS (6)
  - Atrial fibrillation [Unknown]
  - Fatigue [Unknown]
  - Pain in extremity [Unknown]
  - Heart rate increased [Unknown]
  - Bradycardia [Unknown]
  - Blood pressure fluctuation [Unknown]
